FAERS Safety Report 8048095-0 (Version None)
Quarter: 2012Q1

REPORT INFORMATION
  Report Type: 
  Country: None (occurrence: None)
  Receive Date: 20120112
  Receipt Date: 20120112
  Transmission Date: 20120608
  Serious: Yes (Hospitalization, Other)
  Sender: FDA-Public Use
  Company Number: None

PATIENT
  Age: 84 Year
  Sex: Female
  Weight: 47.6277 kg

DRUGS (2)
  1. PREDNISOLONE SODIUM PHOSPHATE [Suspect]
     Indication: DRY EYE
     Dosage: 1-DROP 4 X DAILY/2 WEEKS LEFT EYE; 1-DROP 2X DAILY/ONE WEEK LEFT EYE
     Dates: start: 20110712, end: 20110725
  2. PREDNISOLONE SODIUM PHOSPHATE [Suspect]
     Indication: DRY EYE
     Dosage: 1-DROP 4 X DAILY/2 WEEKS LEFT EYE; 1-DROP 2X DAILY/ONE WEEK LEFT EYE
     Dates: start: 20110726, end: 20110801

REACTIONS (8)
  - BLOOD SODIUM DECREASED [None]
  - MICTURITION URGENCY [None]
  - URINARY TRACT INFECTION [None]
  - MYALGIA [None]
  - YELLOW SKIN [None]
  - OEDEMA PERIPHERAL [None]
  - BACK PAIN [None]
  - FATIGUE [None]
